FAERS Safety Report 20589802 (Version 1)
Quarter: 2022Q1

REPORT INFORMATION
  Report Type: Spontaneous
  Country: US (occurrence: US)
  Receive Date: 20220314
  Receipt Date: 20220314
  Transmission Date: 20220423
  Serious: No
  Sender: FDA-Public Use
  Company Number: US-TORRENT-00011783

PATIENT
  Age: 33 Year
  Sex: Male
  Weight: 97 kg

DRUGS (1)
  1. CITALOPRAM HYDROBROMIDE [Suspect]
     Active Substance: CITALOPRAM HYDROBROMIDE
     Indication: Adrenal calcification
     Dosage: 1/2 TABLET DAILY; 10 DAYS
     Route: 065
     Dates: end: 2021

REACTIONS (4)
  - Headache [Unknown]
  - Dizziness [Unknown]
  - Off label use [Unknown]
  - Wrong technique in product usage process [Unknown]
